FAERS Safety Report 6900632-2 (Version None)
Quarter: 2010Q3

REPORT INFORMATION
  Report Type: 
  Country: None (occurrence: None)
  Receive Date: 20100730
  Receipt Date: 20100715
  Transmission Date: 20110219
  Serious: Yes (Life-Threatening, Hospitalization, Disabling, Other)
  Sender: FDA-Public Use
  Company Number: DSJ-2010-08240

PATIENT
  Age: 86 Year
  Sex: Female

DRUGS (6)
  1. OLMESARTAN MEDOXOMIL [Suspect]
     Indication: HYPERTENSION
     Dosage: 20 MG (20 MG, 1 IN 1 D), PER ORAL
     Route: 048
     Dates: start: 20090623, end: 20100501
  2. NORVASC [Concomitant]
  3. GANATON (ITOPRIDE HYDROCHLORIDE) (TABLET) (ITOPRIDE HYDROCHLORIDE) [Concomitant]
  4. MAGNESIUM OXIDE (MAGNESIUM OXIDE) (MAGNESIUM OXIDE) [Concomitant]
  5. PROTECADIN (LAFUTIDTNE) (TABLET) (LAFUTIDINE) [Concomitant]
  6. BLOPRESS (CANDESARTAN CILEXETIL) (TABLET) (CANDESARTAN CILEXETIL) [Concomitant]

REACTIONS (4)
  - ALTERED STATE OF CONSCIOUSNESS [None]
  - DIZZINESS [None]
  - INAPPROPRIATE ANTIDIURETIC HORMONE SECRETION [None]
  - MALAISE [None]
